FAERS Safety Report 7701626-X (Version None)
Quarter: 2011Q3

REPORT INFORMATION
  Report Type: 
  Country: None (occurrence: None)
  Receive Date: 20110822
  Receipt Date: 20110817
  Transmission Date: 20111222
  Serious: Yes (Life-Threatening)
  Sender: FDA-Public Use
  Company Number: AT-ASTRAZENECA-2011SE49399

PATIENT
  Age: 68 Year
  Sex: Male

DRUGS (8)
  1. BORTEZOMIB [Concomitant]
  2. DEXAMETHASONE [Concomitant]
  3. RAMIPRIL INTERPHARM [Concomitant]
  4. BRILIQUE [Suspect]
     Indication: ACUTE MYOCARDIAL INFARCTION
     Route: 048
     Dates: start: 20110727, end: 20110730
  5. DANCOR [Concomitant]
  6. ASPIRIN [Concomitant]
  7. BISOPROLOL FUMARATE [Concomitant]
  8. ACETYLSALICYLSAEURE [Concomitant]

REACTIONS (2)
  - PLATELET FUNCTION TEST ABNORMAL [None]
  - POST PROCEDURAL HAEMORRHAGE [None]
